FAERS Safety Report 16967062 (Version 2)
Quarter: 2020Q1

REPORT INFORMATION
  Report Type: Report from Study
  Country: US (occurrence: US)
  Receive Date: 20191028
  Receipt Date: 20200103
  Transmission Date: 20200409
  Serious: Yes (Hospitalization)
  Sender: FDA-Public Use
  Company Number: US-ACTELION-A-US2017-161276

PATIENT
  Age: 93 Year
  Sex: Male

DRUGS (1)
  1. OPSUMIT [Suspect]
     Active Substance: MACITENTAN
     Indication: PULMONARY ARTERIAL HYPERTENSION
     Dosage: 10 MG, QD
     Route: 048
     Dates: start: 20170116

REACTIONS (19)
  - Arthralgia [Recovered/Resolved with Sequelae]
  - Chest injury [Unknown]
  - Dyspnoea [Unknown]
  - Vertigo [Unknown]
  - Cardiac procedure complication [Unknown]
  - Back pain [Unknown]
  - Musculoskeletal chest pain [Unknown]
  - Alanine aminotransferase increased [Unknown]
  - Pain in extremity [Unknown]
  - Asthenia [Unknown]
  - Neck pain [Unknown]
  - Chest discomfort [Unknown]
  - Pelvic fracture [Recovered/Resolved with Sequelae]
  - Skin laceration [Not Recovered/Not Resolved]
  - Wound infection [Unknown]
  - Fall [Recovered/Resolved with Sequelae]
  - Wound [Unknown]
  - Haematoma [Recovered/Resolved with Sequelae]
  - Transcatheter aortic valve implantation [Recovered/Resolved]

NARRATIVE: CASE EVENT DATE: 201712
